FAERS Safety Report 10549494 (Version 1)
Quarter: 2014Q4

REPORT INFORMATION
  Report Type: Spontaneous
  Country: JP (occurrence: JP)
  Receive Date: 20141028
  Receipt Date: 20141028
  Transmission Date: 20150529
  Serious: Yes (Other)
  Sender: FDA-Public Use
  Company Number: JP-BAYER-2014-153892

PATIENT
  Age: 33 Year
  Sex: Female

DRUGS (1)
  1. NIFEDIPINE. [Suspect]
     Active Substance: NIFEDIPINE
     Indication: BLOOD PRESSURE INCREASED
     Route: 048

REACTIONS (8)
  - Pericardial effusion [None]
  - Pleural effusion [Recovered/Resolved]
  - Exposure during pregnancy [Recovered/Resolved]
  - Cardiac failure [None]
  - Peripartum cardiomyopathy [None]
  - Cardiomegaly [None]
  - Brain natriuretic peptide increased [None]
  - Abortion induced complicated [None]
